FAERS Safety Report 17846326 (Version 1)
Quarter: 2020Q2

REPORT INFORMATION
  Report Type: Spontaneous
  Country: DE (occurrence: DE)
  Receive Date: 20200601
  Receipt Date: 20200601
  Transmission Date: 20200714
  Serious: Yes (Other)
  Sender: FDA-Public Use
  Company Number: DE-MYLANLABS-2020M1052153

PATIENT
  Sex: Female

DRUGS (1)
  1. EVEROLIMUS. [Suspect]
     Active Substance: EVEROLIMUS
     Indication: NEUROENDOCRINE TUMOUR
     Dosage: UNK
     Route: 065
     Dates: start: 2018

REACTIONS (7)
  - Right ventricular failure [Unknown]
  - Tricuspid valve incompetence [Unknown]
  - Oedema peripheral [Unknown]
  - Pleural effusion [Unknown]
  - Pericardial effusion [Unknown]
  - Pulmonary arterial hypertension [Unknown]
  - Generalised oedema [Unknown]

NARRATIVE: CASE EVENT DATE: 2018
